FAERS Safety Report 21628000 (Version 2)
Quarter: 2022Q4

REPORT INFORMATION
  Report Type: Spontaneous
  Country: ES (occurrence: ES)
  Receive Date: 20221122
  Receipt Date: 20221221
  Transmission Date: 20230113
  Serious: Yes (Other)
  Sender: FDA-Public Use
  Company Number: ES-PFIZER INC-PV202200107942

PATIENT
  Age: 11 Year
  Sex: Male

DRUGS (3)
  1. METHOTREXATE SODIUM [Suspect]
     Active Substance: METHOTREXATE SODIUM
     Indication: Congenital retinoblastoma
     Dosage: 3 RD DOSE (12 G/M2)
  2. IFOSFAMIDE [Concomitant]
     Active Substance: IFOSFAMIDE
     Indication: Congenital retinoblastoma
     Dosage: UNK, CYCLIC
  3. DOXORUBICIN [Concomitant]
     Active Substance: DOXORUBICIN
     Indication: Congenital retinoblastoma
     Dosage: UNK, CYCLIC

REACTIONS (2)
  - Palmar-plantar erythrodysaesthesia syndrome [Recovered/Resolved]
  - Off label use [Unknown]
